FAERS Safety Report 9032249 (Version 2)
Quarter: 2013Q1

REPORT INFORMATION
  Report Type: Report from Study
  Country: BR (occurrence: BR)
  Receive Date: 20130122
  Receipt Date: 20130313
  Transmission Date: 20140127
  Serious: Yes (Other)
  Sender: FDA-Public Use
  Company Number: BR-ABBOTT-13P-020-1036546-00

PATIENT
  Age: 25 None
  Sex: Female
  Weight: 50 kg

DRUGS (3)
  1. HUMIRA [Suspect]
     Indication: CROHN^S DISEASE
     Dosage: WEEK 0
     Route: 058
     Dates: start: 20120810, end: 20120810
  2. HUMIRA [Suspect]
     Route: 058
  3. ADOLESS [Concomitant]
     Indication: CONTRACEPTION
     Route: 048
     Dates: start: 2009

REACTIONS (3)
  - Cyst [Recovered/Resolved]
  - Tooth extraction [Recovered/Resolved]
  - Dermal cyst [Unknown]
